FAERS Safety Report 15955294 (Version 2)
Quarter: 2019Q1

REPORT INFORMATION
  Report Type: Spontaneous
  Country: US (occurrence: US)
  Receive Date: 20190213
  Receipt Date: 20190221
  Transmission Date: 20190417
  Serious: No
  Sender: FDA-Public Use
  Company Number: US-PFIZER INC-2019064776

PATIENT
  Age: 62 Year
  Sex: Male

DRUGS (5)
  1. POTASSIUM CHLORIDE. [Suspect]
     Active Substance: POTASSIUM CHLORIDE
     Dosage: UNK
     Dates: start: 20180813, end: 20180813
  2. PROPOFOL. [Suspect]
     Active Substance: PROPOFOL
     Dosage: 800 MG, UNK
     Route: 042
     Dates: start: 20180811, end: 20180811
  3. PROTONIX [Suspect]
     Active Substance: PANTOPRAZOLE SODIUM
     Dosage: 40 MG, 2X/DAY (PO TWICE A DAY)
     Route: 048
     Dates: start: 20180813
  4. EPINEPHRINE. [Suspect]
     Active Substance: EPINEPHRINE
     Dosage: UNK (1 MILLILITER INJECTION)
     Dates: start: 20180811, end: 20180811
  5. XYLOMETAZOLINE [Suspect]
     Active Substance: XYLOMETAZOLINE
     Dosage: UNK (5 MILLILITER INJECTION)
     Dates: start: 20180811, end: 20180811

REACTIONS (1)
  - Drug hypersensitivity [Unknown]
